FAERS Safety Report 5015519-2 (Version None)
Quarter: 2006Q2

REPORT INFORMATION
  Report Type: 
  Country: None (occurrence: None)
  Receive Date: 20060526
  Receipt Date: 20060523
  Transmission Date: 20061013
  Serious: Yes (Other)
  Sender: FDA-Public Use
  Company Number: 2006S1000107

PATIENT
  Age: 18 Day
  Sex: Female

DRUGS (4)
  1. INOMAX [Suspect]
     Indication: LUNG DISORDER
     Dosage: 5 PPM; INH_GAS; INH; CONT
     Route: 055
     Dates: start: 20060501, end: 20060515
  2. INOMAX [Suspect]
     Indication: PROPHYLAXIS
     Dosage: 5 PPM; INH_GAS; INH; CONT
     Route: 055
     Dates: start: 20060501, end: 20060515
  3. IBUPROFEN [Concomitant]
  4. DOPAMINE HCL [Concomitant]

REACTIONS (1)
  - PATENT DUCTUS ARTERIOSUS [None]
